FAERS Safety Report 10187609 (Version 1)
Quarter: 2014Q2

REPORT INFORMATION
  Report Type: Spontaneous
  Country: US (occurrence: US)
  Receive Date: 20140522
  Receipt Date: 20140522
  Transmission Date: 20141212
  Serious: No
  Sender: FDA-Public Use
  Company Number: US-SANOFI-AVENTIS-2013SA076794

PATIENT
  Age: 17 Year
  Sex: Male
  Weight: 74.84 kg

DRUGS (3)
  1. SOLOSTAR [Suspect]
     Indication: DIABETES MELLITUS
     Route: 065
     Dates: start: 20130301
  2. LANTUS SOLOSTAR [Suspect]
     Route: 065
  3. HUMALOG [Suspect]
     Route: 065

REACTIONS (3)
  - Adverse event [Not Recovered/Not Resolved]
  - Wrong drug administered [Unknown]
  - Incorrect dose administered [Unknown]
